FAERS Safety Report 23863971 (Version 3)
Quarter: 2024Q2

REPORT INFORMATION
  Report Type: Report from Study
  Country: GB (occurrence: GB)
  Receive Date: 20240516
  Receipt Date: 20240527
  Transmission Date: 20240715
  Serious: Yes (Hospitalization, Other)
  Sender: FDA-Public Use
  Company Number: GB-ROCHE-3129306

PATIENT
  Age: 77 Year
  Sex: Male
  Weight: 78.4 kg

DRUGS (29)
  1. CARBOPLATIN [Suspect]
     Active Substance: CARBOPLATIN
     Indication: Small cell lung cancer extensive stage
     Route: 065
     Dates: start: 20220506
  2. ATEZOLIZUMAB [Suspect]
     Active Substance: ATEZOLIZUMAB
     Indication: Small cell lung cancer extensive stage
     Dosage: ON 17/JUN/2022 AND 03/FEB/2023, DOSE LAST STUDY DRUG ADMIN PRIOR AE AND SAE IS 1200 MG
     Route: 041
     Dates: start: 20220506
  3. LANOLIN\ZINC OXIDE [Concomitant]
     Active Substance: LANOLIN\ZINC OXIDE
     Dates: start: 202208
  4. LANOLIN\ZINC OXIDE [Concomitant]
     Active Substance: LANOLIN\ZINC OXIDE
     Dates: start: 202208
  5. MAGNESIUM ASPARTATE [Concomitant]
     Active Substance: MAGNESIUM ASPARTATE
     Dosage: MULTIPLE 1 DAYS
     Dates: start: 20220629
  6. DEXAMETHASONE [Concomitant]
     Active Substance: DEXAMETHASONE
     Indication: Metastases to central nervous system
     Route: 065
     Dates: start: 20240309, end: 20240310
  7. DEXAMETHASONE [Concomitant]
     Active Substance: DEXAMETHASONE
     Indication: Metastases to central nervous system
     Route: 065
     Dates: start: 20240311
  8. FILGRASTIM [Concomitant]
     Active Substance: FILGRASTIM
  9. CARBOCYSTEINE [Concomitant]
     Active Substance: CARBOCYSTEINE
     Dates: start: 20230110
  10. CYCLIZINE [Concomitant]
     Active Substance: CYCLIZINE
     Dates: start: 20240311
  11. CYCLIZINE [Concomitant]
     Active Substance: CYCLIZINE
     Route: 065
     Dates: start: 20240311
  12. ETOPOSIDE [Suspect]
     Active Substance: ETOPOSIDE
     Indication: Small cell lung cancer extensive stage
     Route: 042
     Dates: start: 20220506
  13. ACYCLOVIR [Concomitant]
     Active Substance: ACYCLOVIR
     Dates: start: 20230509, end: 20230517
  14. ACYCLOVIR [Concomitant]
     Active Substance: ACYCLOVIR
     Dosage: DURATION: 9 DAYS
     Dates: start: 20230509, end: 20230517
  15. MOXIFLOXACIN [Concomitant]
     Active Substance: MOXIFLOXACIN
     Dates: start: 20230509, end: 20230522
  16. MOXIFLOXACIN [Concomitant]
     Active Substance: MOXIFLOXACIN
     Dosage: DURATION: 14 DAYS
     Dates: start: 20230509, end: 20230522
  17. AMLODIPINE [Concomitant]
     Active Substance: AMLODIPINE BESYLATE
     Dates: start: 2020
  18. AMLODIPINE [Concomitant]
     Active Substance: AMLODIPINE BESYLATE
     Dates: start: 2020
  19. ATORVASTATIN [Concomitant]
     Active Substance: ATORVASTATIN
     Dates: start: 2020
  20. ATORVASTATIN [Concomitant]
     Active Substance: ATORVASTATIN
     Dates: start: 2020
  21. ONDANSETRON [Concomitant]
     Active Substance: ONDANSETRON
     Dosage: DURATION: 1 DAY
     Dates: start: 20220527, end: 20220527
  22. ONDANSETRON [Concomitant]
     Active Substance: ONDANSETRON
     Dosage: DURATION: 1 DAY
     Dates: start: 20220711, end: 20220711
  23. ONDANSETRON [Concomitant]
     Active Substance: ONDANSETRON
     Dosage: DURATION: 1 DAY
     Dates: start: 20220617, end: 20220617
  24. ONDANSETRON [Concomitant]
     Active Substance: ONDANSETRON
     Dosage: DURATION: 1 DAY
     Dates: start: 20220801, end: 20220801
  25. ACETAMINOPHEN [Concomitant]
     Active Substance: ACETAMINOPHEN
     Dates: start: 20221201
  26. ACETAMINOPHEN [Concomitant]
     Active Substance: ACETAMINOPHEN
     Dates: start: 20221201
  27. ALBUTEROL [Concomitant]
     Active Substance: ALBUTEROL
     Dates: start: 2020
  28. ALBUTEROL [Concomitant]
     Active Substance: ALBUTEROL
     Dates: start: 2020
  29. BECLOMETHASONE DIPROPIONATE\FORMOTEROL FUMARATE\GLYCOPYRROLATE [Concomitant]
     Active Substance: BECLOMETHASONE DIPROPIONATE\FORMOTEROL FUMARATE\GLYCOPYRROLATE
     Dates: start: 2020

REACTIONS (13)
  - Infective exacerbation of chronic obstructive airways disease [Recovered/Resolved]
  - COVID-19 [Recovered/Resolved]
  - Pneumonia [Recovered/Resolved]
  - Oral herpes [Not Recovered/Not Resolved]
  - White blood cell count decreased [Recovered/Resolved]
  - Rhinitis [Recovered/Resolved]
  - Platelet count decreased [Recovered/Resolved]
  - C-reactive protein increased [Recovered/Resolved]
  - Gout [Not Recovered/Not Resolved]
  - Anaemia [Not Recovered/Not Resolved]
  - Lymphocyte count decreased [Recovered/Resolved]
  - Dyspnoea [Not Recovered/Not Resolved]
  - Lower respiratory tract infection [Recovered/Resolved]

NARRATIVE: CASE EVENT DATE: 20220614
